FAERS Safety Report 12521036 (Version 1)
Quarter: 2016Q2

REPORT INFORMATION
  Report Type: Spontaneous
  Country: US (occurrence: None)
  Receive Date: 20160630
  Receipt Date: 20160630
  Transmission Date: 20160815
  Serious: Yes (Hospitalization)
  Sender: FDA-Public Use
  Company Number: None

PATIENT
  Age: 39 Year
  Sex: Female
  Weight: 86.73 kg

DRUGS (1)
  1. CLOZAPINE, 125MG [Suspect]
     Active Substance: CLOZAPINE
     Indication: SUICIDAL IDEATION
     Route: 048

REACTIONS (4)
  - Chest discomfort [None]
  - Troponin increased [None]
  - Myocarditis [None]
  - Dyspnoea exertional [None]

NARRATIVE: CASE EVENT DATE: 20160627
